FAERS Safety Report 11083104 (Version 1)
Quarter: 2015Q2

REPORT INFORMATION
  Report Type: Spontaneous
  Country: US (occurrence: US)
  Receive Date: 20150501
  Receipt Date: 20150501
  Transmission Date: 20150821
  Serious: No
  Sender: FDA-Public Use
  Company Number: US-SHIRE-US201503881

PATIENT

DRUGS (1)
  1. VYVANSE [Suspect]
     Active Substance: LISDEXAMFETAMINE DIMESYLATE
     Indication: BINGE EATING
     Dosage: UNK UNK, 1X/DAY:QD
     Route: 048
     Dates: start: 201504, end: 201504

REACTIONS (1)
  - Agitation [Unknown]

NARRATIVE: CASE EVENT DATE: 201504
